FAERS Safety Report 18777374 (Version 1)
Quarter: 2021Q1

REPORT INFORMATION
  Report Type: Spontaneous
  Country: CN (occurrence: CN)
  Receive Date: 20210122
  Receipt Date: 20210122
  Transmission Date: 20210419
  Serious: Yes (Other)
  Sender: FDA-Public Use
  Company Number: CN-PFIZER INC-2021036422

PATIENT
  Age: 63 Year
  Sex: Female

DRUGS (1)
  1. ANZATAX (PACLITAXEL) [Suspect]
     Active Substance: PACLITAXEL
     Indication: OVARIAN CANCER
     Dosage: 30 MG, 1X/DAY
     Route: 041
     Dates: start: 20210105, end: 20210105

REACTIONS (4)
  - Blood pressure increased [Recovering/Resolving]
  - Flushing [Recovering/Resolving]
  - Infusion related reaction [Recovering/Resolving]
  - Heart rate increased [Recovering/Resolving]

NARRATIVE: CASE EVENT DATE: 20210105
